FAERS Safety Report 5847467-X (Version None)
Quarter: 2008Q3

REPORT INFORMATION
  Report Type: 
  Country: None (occurrence: None)
  Receive Date: 20080815
  Receipt Date: 20080805
  Transmission Date: 20090109
  Serious: Yes (Hospitalization)
  Sender: FDA-Public Use
  Company Number: US-ABBOTT-08P-163-0468944-00

PATIENT
  Sex: Female
  Weight: 49.032 kg

DRUGS (1)
  1. HUMIRA [Suspect]
     Indication: RHEUMATOID ARTHRITIS
     Route: 058
     Dates: start: 20050101, end: 20070901

REACTIONS (3)
  - NASOPHARYNGITIS [None]
  - RHEUMATOID ARTHRITIS [None]
  - SHOULDER ARTHROPLASTY [None]
